FAERS Safety Report 5169583-0 (Version None)
Quarter: 2006Q4

REPORT INFORMATION
  Report Type: 
  Country: None (occurrence: None)
  Receive Date: 20060918
  Receipt Date: 20051018
  Transmission Date: 20070319
  Serious: Yes (Other)
  Sender: FDA-Public Use
  Company Number: US-JNJFOC-20051004407

PATIENT
  Age: 47 Year
  Sex: Female
  Weight: 49.8957 kg

DRUGS (3)
  1. TOPAMAX [Suspect]
     Indication: GRAND MAL CONVULSION
     Dosage: 750 MG, IN 1 DAY, ORAL
     Route: 048
     Dates: start: 20030101
  2. SYNTHROID [Concomitant]
  3. ATENOLOL [Concomitant]

REACTIONS (2)
  - CONVULSION [None]
  - WEIGHT DECREASED [None]
